FAERS Safety Report 5727589-4 (Version None)
Quarter: 2008Q2

REPORT INFORMATION
  Report Type: 
  Country: None (occurrence: None)
  Receive Date: 20080505
  Receipt Date: 20080429
  Transmission Date: 20081010
  Serious: Yes (Death, Other)
  Sender: FDA-Public Use
  Company Number: DE-BRISTOL-MYERS SQUIBB COMPANY-14170674

PATIENT
  Age: 3 Decade
  Sex: Male

DRUGS (3)
  1. SPRYCEL [Suspect]
     Indication: CHRONIC MYELOID LEUKAEMIA
     Dosage: RESTARTED SPRYCEL 06-JAN-2008 TO 23-JAN-2008.
     Dates: start: 20070801
  2. TASIGNA [Concomitant]
     Dates: start: 20070901
  3. GLEEVEC [Concomitant]

REACTIONS (4)
  - DEATH [None]
  - HAEMOGLOBIN DECREASED [None]
  - MALAISE [None]
  - PAIN IN EXTREMITY [None]
